FAERS Safety Report 4329397-8 (Version None)
Quarter: 2004Q1

REPORT INFORMATION
  Report Type: 
  Country: None (occurrence: None)
  Receive Date: 20040331
  Receipt Date: 20040331
  Transmission Date: 20041129
  Serious: Yes (Other)
  Sender: FDA-Public Use
  Company Number: None

PATIENT
  Sex: Female
  Weight: 88.4514 kg

DRUGS (3)
  1. BUPIVACAINE [Suspect]
     Indication: PAIN MANAGEMENT
     Dosage: 22CC/HR WITH 1CC BOLUS Q 45 MIN
     Route: 040
     Dates: start: 20040218, end: 20040226
  2. VIOXX [Concomitant]
  3. TORADOL [Suspect]
     Dosage: OVER 8 DAYS  400 CC TOTAL

REACTIONS (3)
  - MEDICAL DEVICE COMPLICATION [None]
  - NAUSEA [None]
  - PRURITUS [None]
